FAERS Safety Report 4394004-5 (Version None)
Quarter: 2004Q3

REPORT INFORMATION
  Report Type: 
  Country: None (occurrence: None)
  Receive Date: 20040707
  Receipt Date: 20040621
  Transmission Date: 20050211
  Serious: Yes (Death)
  Sender: FDA-Public Use
  Company Number: 8306

PATIENT

DRUGS (8)
  1. CYTARABINE [Suspect]
     Indication: ACUTE MYELOID LEUKAEMIA
     Dosage: 1 G/M2 IV
     Route: 042
  2. DAUNORUBICIN HCL [Suspect]
     Indication: ACUTE MYELOID LEUKAEMIA
     Dosage: 75 MG/M2 IV
     Route: 042
  3. GEMTUZUMAB OZOGAMICIN [Suspect]
     Indication: ACUTE MYELOID LEUKAEMIA
     Dosage: 6 MG/M2 ONCE IV
     Route: 042
  4. CYCLOSPORINE [Suspect]
     Indication: ACUTE MYELOID LEUKAEMIA
     Dosage: 6 MG/KG ONCE/16 MG/KG IV
     Route: 042
  5. DIPHENHYDRAMINE [Concomitant]
  6. FLUCONAZOLE [Concomitant]
  7. VALACYCLOVIR HCL [Concomitant]
  8. SULFAMETHOXAZOLE/TRIMETHOPRIM DS [Concomitant]

REACTIONS (3)
  - APLASTIC ANAEMIA [None]
  - NEUTROPENIA [None]
  - THROMBOCYTOPENIA [None]
